FAERS Safety Report 24447647 (Version 1)
Quarter: 2024Q4

REPORT INFORMATION
  Report Type: Spontaneous
  Country: US (occurrence: US)
  Receive Date: 20241016
  Receipt Date: 20241016
  Transmission Date: 20250115
  Serious: No
  Sender: SANOFI AVENTIS
  Company Number: US-SA-2024SA294922

PATIENT
  Sex: Female

DRUGS (1)
  1. DUPIXENT [Suspect]
     Active Substance: DUPILUMAB
     Indication: Neurodermatitis
     Dosage: 300 MG, QOW
     Route: 058

REACTIONS (12)
  - Oral pain [Unknown]
  - Swollen tongue [Recovered/Resolved]
  - Tongue blistering [Recovered/Resolved]
  - Oral discomfort [Unknown]
  - Tongue discomfort [Recovered/Resolved]
  - Tongue erythema [Recovered/Resolved]
  - Oral mucosal erythema [Unknown]
  - Dental discomfort [Unknown]
  - Hypertension [Unknown]
  - Sinus disorder [Unknown]
  - Gingival pain [Unknown]
  - Toothache [Unknown]
